FAERS Safety Report 16180744 (Version 1)
Quarter: 2019Q2

REPORT INFORMATION
  Report Type: Spontaneous
  Country: US (occurrence: US)
  Receive Date: 20190410
  Receipt Date: 20190410
  Transmission Date: 20190711
  Serious: No
  Sender: FDA-Public Use
  Company Number: US-TEVA-2019-US-1038034

PATIENT
  Sex: Female

DRUGS (1)
  1. CLONAZEPAM TEVA TABLET [Suspect]
     Active Substance: CLONAZEPAM
     Indication: SOMNAMBULISM
     Route: 065

REACTIONS (2)
  - Product prescribing error [Unknown]
  - Drug ineffective for unapproved indication [Unknown]
